FAERS Safety Report 5326155-2 (Version None)
Quarter: 2007Q2

REPORT INFORMATION
  Report Type: 
  Country: None (occurrence: None)
  Receive Date: 20070516
  Receipt Date: 20070507
  Transmission Date: 20071010
  Serious: Yes (Hospitalization)
  Sender: FDA-Public Use
  Company Number: ES-AVENTIS-200712213EU

PATIENT
  Age: 79 Year

DRUGS (5)
  1. CLEXANE [Suspect]
     Indication: ATRIAL FIBRILLATION
     Route: 058
     Dates: start: 20070209, end: 20070221
  2. RIFATER [Suspect]
     Dosage: DOSE: 5 TABLETS
     Route: 048
     Dates: start: 20070205, end: 20070218
  3. GLYBURIDE [Concomitant]
     Indication: DIABETES MELLITUS
     Route: 048
  4. DIANBEN [Concomitant]
     Indication: DIABETES MELLITUS
     Route: 048
  5. RENITEC                            /00574901/ [Concomitant]
     Route: 048

REACTIONS (1)
  - HEPATITIS [None]
